FAERS Safety Report 6412517-9 (Version None)
Quarter: 2009Q4

REPORT INFORMATION
  Report Type: 
  Country: None (occurrence: None)
  Receive Date: 20091023
  Receipt Date: 20090610
  Transmission Date: 20100525
  Serious: No
  Sender: FDA-Public Use
  Company Number: US-BRISTOL-MYERS SQUIBB COMPANY-14656748

PATIENT
  Age: 69 Year
  Sex: Male

DRUGS (7)
  1. KENALOG-40 [Suspect]
     Route: 058
     Dates: start: 20090601
  2. METFORMIN HCL [Concomitant]
  3. BYETTA [Concomitant]
  4. AMARYL [Concomitant]
  5. HYZAAR [Concomitant]
  6. COUMADIN [Concomitant]
  7. LANOXIN [Concomitant]

REACTIONS (2)
  - MEDICATION ERROR [None]
  - NO ADVERSE EVENT [None]
